FAERS Safety Report 7330736-4 (Version None)
Quarter: 2011Q1

REPORT INFORMATION
  Report Type: 
  Country: None (occurrence: None)
  Receive Date: 20110304
  Receipt Date: 20110208
  Transmission Date: 20110831
  Serious: Yes (Hospitalization)
  Sender: FDA-Public Use
  Company Number: US-BAYER-201036203NA

PATIENT
  Sex: Female
  Weight: 68 kg

DRUGS (5)
  1. METFORMIN [Concomitant]
     Indication: DIABETES MELLITUS
  2. ALBUTEROL [Concomitant]
  3. YASMIN [Suspect]
     Indication: CONTRACEPTION
     Dosage: UNK
     Route: 048
     Dates: start: 20050801, end: 20050913
  4. YASMIN [Suspect]
     Indication: POLYCYSTIC OVARIES
  5. NAPROXEN [Concomitant]
     Indication: POLYCYSTIC OVARIES

REACTIONS (3)
  - PAIN IN EXTREMITY [None]
  - DEEP VEIN THROMBOSIS [None]
  - PULMONARY EMBOLISM [None]
